FAERS Safety Report 20768807 (Version 1)
Quarter: 2022Q2

REPORT INFORMATION
  Report Type: Report from Study
  Country: US (occurrence: US)
  Receive Date: 20220429
  Receipt Date: 20220429
  Transmission Date: 20220720
  Serious: Yes (Other)
  Sender: FDA-Public Use
  Company Number: US-NOVARTISPH-NVSC2022US096328

PATIENT
  Sex: Female

DRUGS (2)
  1. KISQALI [Suspect]
     Active Substance: RIBOCICLIB
     Indication: Product used for unknown indication
     Dosage: 600 MG (3 TABLETS BY MOUTH FOR 21 DAYS FOLLOWED BY 7 DAYS OFF AND 1 FEMARA TABLET DAILY)
     Route: 048
     Dates: start: 20180619, end: 20220414
  2. FEMARA [Suspect]
     Active Substance: LETROZOLE
     Indication: Product used for unknown indication
     Dosage: 600 MG (3 TABLETS BY MOUTH FOR 21 DAYS FOLLOWED BY 7 DAYS OFF AND 1 FEMARA TABLET DAILY)
     Route: 048
     Dates: start: 20180619, end: 20220414

REACTIONS (1)
  - Deafness [Unknown]
